FAERS Safety Report 17620615 (Version 4)
Quarter: 2020Q2

REPORT INFORMATION
  Report Type: Report from Study
  Country: KR (occurrence: KR)
  Receive Date: 20200403
  Receipt Date: 20200529
  Transmission Date: 20200713
  Serious: Yes (Hospitalization)
  Sender: FDA-Public Use
  Company Number: NVSC2020KR088568

PATIENT
  Age: 52 Year
  Sex: Female
  Weight: 63 kg

DRUGS (32)
  1. NORMAL SALINE [Concomitant]
     Active Substance: SODIUM CHLORIDE
     Indication: COMPUTERISED TOMOGRAM
     Dosage: UNK
     Route: 065
     Dates: start: 20200326, end: 20200326
  2. CHLORPHENIRAMINE MALEATE. [Concomitant]
     Active Substance: CHLORPHENIRAMINE MALEATE
     Indication: TRANSFUSION
     Dosage: UNK
     Route: 065
     Dates: start: 20200326, end: 20200326
  3. ASCORBIC ACID. [Concomitant]
     Active Substance: ASCORBIC ACID
     Indication: NUTRITIONAL CONDITION ABNORMAL
     Dosage: 100 MG
     Route: 065
     Dates: start: 20200326, end: 20200326
  4. FRESH FROZEN PLASMA [Concomitant]
     Active Substance: HUMAN PLASMA
     Indication: TRANSFUSION
     Route: 065
     Dates: start: 20200326, end: 20200326
  5. NORMAL SALINE [Concomitant]
     Active Substance: SODIUM CHLORIDE
     Indication: NUTRITIONAL SUPPLEMENTATION
     Dosage: UNK
     Route: 065
     Dates: start: 20200326, end: 20200327
  6. NORMAL SALINE [Concomitant]
     Active Substance: SODIUM CHLORIDE
     Dosage: UNK
     Route: 065
     Dates: start: 20200327
  7. TAMIPOOL [Concomitant]
     Active Substance: VITAMINS
     Indication: NUTRITIONAL CONDITION ABNORMAL
     Dosage: UNK
     Route: 065
     Dates: start: 20200326, end: 20200326
  8. BIOLACTO [Concomitant]
     Indication: CROHN^S DISEASE
     Dosage: 300 MG
     Route: 065
     Dates: start: 20200311, end: 20200325
  9. ESOMEPRAZOLE SODIUM. [Concomitant]
     Active Substance: ESOMEPRAZOLE SODIUM
     Indication: PROPHYLAXIS
     Dosage: UNK
     Route: 065
     Dates: start: 20181213, end: 20200325
  10. ESOMEPRAZOLE SODIUM. [Concomitant]
     Active Substance: ESOMEPRAZOLE SODIUM
     Dosage: UNK
     Route: 065
     Dates: start: 20200326, end: 20200326
  11. NORMAL SALINE [Concomitant]
     Active Substance: SODIUM CHLORIDE
     Indication: PREMEDICATION
     Dosage: UNK
     Route: 065
     Dates: start: 20200327, end: 20200327
  12. CHLORPHENIRAMINE MALEATE. [Concomitant]
     Active Substance: CHLORPHENIRAMINE MALEATE
     Indication: PROPHYLAXIS
     Dosage: UNK
     Route: 065
     Dates: start: 20200327, end: 20200327
  13. CEFOTAXIME SODIUM [Concomitant]
     Active Substance: CEFOTAXIME SODIUM
     Indication: CROHN^S DISEASE
     Dosage: UNK
     Route: 065
     Dates: start: 20200326, end: 20200327
  14. PANTOPRAZOLE [Concomitant]
     Active Substance: PANTOPRAZOLE
     Indication: PROPHYLAXIS
     Dosage: 40 MG
     Route: 065
     Dates: start: 20200328
  15. PREDNISOLONE. [Concomitant]
     Active Substance: PREDNISOLONE
     Indication: ANKYLOSING SPONDYLITIS
     Dosage: UNK
     Route: 065
     Dates: start: 20190307, end: 20200325
  16. ACECLOFENAC [Concomitant]
     Active Substance: ACECLOFENAC
     Indication: ANKYLOSING SPONDYLITIS
     Dosage: UNK
     Route: 065
     Dates: start: 20180906, end: 20200325
  17. BESZYME [Concomitant]
     Indication: CROHN^S DISEASE
     Dosage: UNK
     Route: 065
     Dates: start: 20200311, end: 20200325
  18. KEFZOL [Concomitant]
     Active Substance: CEFAZOLIN SODIUM
     Indication: CROHN^S DISEASE
     Dosage: 10 %
     Route: 065
     Dates: start: 20200311, end: 20200311
  19. NORMAL SALINE [Concomitant]
     Active Substance: SODIUM CHLORIDE
     Dosage: UNK
     Route: 065
     Dates: start: 20200328
  20. SMOFKABIVEN PERIPHERAL [Concomitant]
     Indication: NUTRITIONAL CONDITION ABNORMAL
     Dosage: UNK
     Route: 065
     Dates: start: 20200326, end: 20200326
  21. POTASSIUM PHOSPHATE MONOBASIC [Concomitant]
     Active Substance: POTASSIUM PHOSPHATE, MONOBASIC
     Indication: ELECTROLYTE IMBALANCE
     Dosage: UNK
     Route: 065
     Dates: start: 20200327
  22. TAZOPEN [Concomitant]
     Indication: CROHN^S DISEASE
     Dosage: 4.5 G
     Route: 065
     Dates: start: 20200327, end: 20200327
  23. SECUKINUMAB. [Suspect]
     Active Substance: SECUKINUMAB
     Indication: ANKYLOSING SPONDYLITIS
     Dosage: UNK
     Route: 042
     Dates: start: 20190207, end: 20200305
  24. METHOTREXATE. [Concomitant]
     Active Substance: METHOTREXATE
     Indication: RHEUMATOID ARTHRITIS
     Dosage: UNK
     Route: 065
     Dates: start: 20160512, end: 20200325
  25. WINUF [Concomitant]
     Indication: NUTRITIONAL CONDITION ABNORMAL
     Dosage: 1085 ML
     Route: 065
     Dates: start: 20200327
  26. PROPOFOL. [Concomitant]
     Active Substance: PROPOFOL
     Indication: ENDOSCOPY
     Route: 065
     Dates: start: 20200316, end: 20200316
  27. FOLIC ACID. [Concomitant]
     Active Substance: FOLIC ACID
     Indication: PROPHYLAXIS
     Dosage: UNK
     Route: 065
     Dates: start: 20190107, end: 20200325
  28. METRONIDAZOLE. [Concomitant]
     Active Substance: METRONIDAZOLE
     Indication: CROHN^S DISEASE
     Dosage: 500 MG
     Route: 065
     Dates: start: 20200326, end: 20200327
  29. TIROPA [Concomitant]
     Active Substance: TIROPRAMIDE
     Indication: CROHN^S DISEASE
     Dosage: 100 MG
     Route: 065
     Dates: start: 20200311, end: 20200325
  30. PAMISOL [Concomitant]
     Active Substance: PAMIDRONATE DISODIUM
     Indication: NUTRITIONAL SUPPLEMENTATION
     Dosage: 500 ML
     Route: 065
     Dates: start: 20200326, end: 20200326
  31. TAZOPEN [Concomitant]
     Dosage: 4.5 G
     Route: 065
     Dates: start: 20200328
  32. POLYBUTINE [Concomitant]
     Indication: CROHN^S DISEASE
     Dosage: UNK
     Route: 065
     Dates: start: 20200311, end: 20200325

REACTIONS (1)
  - Large intestine perforation [Not Recovered/Not Resolved]

NARRATIVE: CASE EVENT DATE: 20200326
